FAERS Safety Report 11094890 (Version 4)
Quarter: 2016Q1

REPORT INFORMATION
  Report Type: Spontaneous
  Country: US (occurrence: US)
  Receive Date: 20150506
  Receipt Date: 20160217
  Transmission Date: 20160525
  Serious: Yes (Life-Threatening, Hospitalization)
  Sender: FDA-Public Use
  Company Number: US-JNJFOC-20150421329

PATIENT
  Age: 26 Year
  Sex: Female
  Weight: 77 kg

DRUGS (2)
  1. INVEGA SUSTENNA [Suspect]
     Active Substance: PALIPERIDONE PALMITATE
     Indication: SCHIZOPHRENIA
     Route: 030
  2. INVEGA SUSTENNA [Suspect]
     Active Substance: PALIPERIDONE PALMITATE
     Indication: SCHIZOPHRENIA
     Route: 030

REACTIONS (4)
  - Septic shock [Recovered/Resolved]
  - Inappropriate schedule of drug administration [Unknown]
  - Pyomyositis [Recovered/Resolved]
  - Acute respiratory failure [Recovered/Resolved]
